FAERS Safety Report 11138555 (Version 1)
Quarter: 2015Q2

REPORT INFORMATION
  Report Type: Spontaneous
  Country: US (occurrence: US)
  Receive Date: 20150527
  Receipt Date: 20150527
  Transmission Date: 20150821
  Serious: No
  Sender: FDA-Public Use
  Company Number: US-TEVA-540837USA

PATIENT
  Age: 70 Year
  Sex: Male

DRUGS (2)
  1. SOTALOL. [Suspect]
     Active Substance: SOTALOL
     Dosage: ^CUT DOWN HIS DOSE^
  2. SOTALOL. [Suspect]
     Active Substance: SOTALOL
     Indication: VENTRICULAR ARRHYTHMIA
     Dosage: DOSE NOT PROVIDED
     Dates: start: 201403

REACTIONS (3)
  - Fatigue [Recovering/Resolving]
  - Musculoskeletal pain [Recovering/Resolving]
  - Osteoporosis [Recovering/Resolving]

NARRATIVE: CASE EVENT DATE: 2014
